FAERS Safety Report 8957288 (Version 3)
Quarter: 2013Q1

REPORT INFORMATION
  Report Type: Report from Study
  Country: DK (occurrence: DK)
  Receive Date: 20121211
  Receipt Date: 20130109
  Transmission Date: 20140127
  Serious: Yes (Hospitalization)
  Sender: FDA-Public Use
  Company Number: DK-MILLENNIUM PHARMACEUTICALS, INC.-2012-07692

PATIENT
  Sex: 0

DRUGS (6)
  1. VELCADE [Suspect]
     Indication: PLASMA CELL MYELOMA
     Dosage: 2.87 MG, UNK
     Route: 042
     Dates: start: 20121026, end: 20121026
  2. DEXAMETHASONE [Suspect]
     Indication: PLASMA CELL MYELOMA
     Dosage: 40 MG, UNK
     Route: 048
     Dates: start: 20121026, end: 20121027
  3. CYCLOPHOSPHAMIDE [Suspect]
     Indication: PLASMA CELL MYELOMA
     Dosage: 1103 MG, UNK
     Route: 042
     Dates: start: 20121023, end: 20121023
  4. OXYCONTIN [Concomitant]
     Dosage: 20 MG, BID
     Route: 048
     Dates: start: 20121018
  5. OXYCONTIN [Concomitant]
     Dosage: 10 UNK, UNK
     Route: 048
     Dates: start: 20121024
  6. OXYNORM [Concomitant]
     Dosage: 10 MG, PRN
     Dates: start: 20121018

REACTIONS (2)
  - Back pain [Recovered/Resolved]
  - Drug interaction [Recovered/Resolved]
